FAERS Safety Report 9940023 (Version 1)
Quarter: 2014Q1

REPORT INFORMATION
  Report Type: Report from Study
  Country: US (occurrence: US)
  Receive Date: 20140303
  Receipt Date: 20140303
  Transmission Date: 20141002
  Serious: No
  Sender: FDA-Public Use
  Company Number: US-ABBVIE-13P-163-1035235-00

PATIENT
  Age: 50 Year
  Sex: Male
  Weight: 79 kg

DRUGS (9)
  1. HUMIRA [Suspect]
     Indication: CROHN^S DISEASE
     Route: 058
     Dates: start: 20121220, end: 20121220
  2. HUMIRA [Suspect]
     Route: 058
     Dates: start: 20130103, end: 20130103
  3. TRAZADONE [Suspect]
     Indication: ANXIETY
     Dosage: 1 IN 1 D, AT BEDTIME
  4. METFORMIN [Concomitant]
     Indication: DIABETES MELLITUS
  5. METOPROLOL [Concomitant]
     Indication: HYPERTENSION
  6. LISINOPRIL [Concomitant]
     Indication: HYPERTENSION
  7. PRAVASTATIN [Concomitant]
     Indication: BLOOD CHOLESTEROL INCREASED
  8. PENTASA [Concomitant]
     Indication: CROHN^S DISEASE
  9. FLU SHOT [Concomitant]
     Indication: PRODUCT USED FOR UNKNOWN INDICATION

REACTIONS (9)
  - Balance disorder [Recovered/Resolved]
  - Abdominal pain upper [Not Recovered/Not Resolved]
  - Abnormal behaviour [Recovered/Resolved]
  - Emotional disorder [Recovered/Resolved]
  - Gait disturbance [Recovered/Resolved]
  - Personality change [Recovered/Resolved]
  - Influenza like illness [Not Recovered/Not Resolved]
  - Ear discomfort [Not Recovered/Not Resolved]
  - Hearing impaired [Not Recovered/Not Resolved]
